FAERS Safety Report 17727335 (Version 1)
Quarter: 2020Q2

REPORT INFORMATION
  Report Type: Report from Study
  Country: GB (occurrence: GB)
  Receive Date: 20200430
  Receipt Date: 20200430
  Transmission Date: 20200714
  Serious: Yes (Hospitalization)
  Sender: FDA-Public Use
  Company Number: GB-ROCHE-2142680

PATIENT
  Sex: Female
  Weight: 58 kg

DRUGS (29)
  1. ATEZOLIZUMAB. [Suspect]
     Active Substance: ATEZOLIZUMAB
     Indication: SQUAMOUS CELL CARCINOMA
     Dosage: DATE OF MOST RECENT DOSE OF ATEZOLIZUMAB 840 MG PRIOR TO THE SAE: 11/JUN/2018
     Route: 042
     Dates: start: 20180430
  2. TRIMETHOPRIM. [Concomitant]
     Active Substance: TRIMETHOPRIM
     Indication: CYSTITIS
     Route: 065
     Dates: start: 20180529, end: 20180601
  3. SALINE [SODIUM CHLORIDE] [Concomitant]
     Active Substance: SODIUM CHLORIDE
     Route: 065
     Dates: start: 20180618, end: 20180621
  4. ZOPICLONE [Concomitant]
     Active Substance: ZOPICLONE
     Indication: INSOMNIA
     Route: 065
     Dates: start: 20180620
  5. PREGABALIN. [Concomitant]
     Active Substance: PREGABALIN
     Indication: EAR PAIN
     Route: 048
     Dates: start: 201709
  6. ACIDOPHILUS [Concomitant]
     Active Substance: LACTOBACILLUS ACIDOPHILUS
     Route: 065
     Dates: start: 2008
  7. PREGABALIN. [Concomitant]
     Active Substance: PREGABALIN
     Indication: OROPHARYNGEAL PAIN
  8. TINZAPARIN [Concomitant]
     Active Substance: TINZAPARIN
     Indication: THROMBOSIS PROPHYLAXIS
     Route: 065
     Dates: start: 20180619, end: 20180620
  9. ASPIRIN [ACETYLSALICYLIC ACID] [Concomitant]
     Active Substance: ASPIRIN
     Indication: ORAL DISCHARGE
     Route: 065
     Dates: start: 20180619
  10. CO-AMOXICLAV [AMOXICILLIN;CLAVULANATE POTASSIUM] [Concomitant]
     Active Substance: AMOXICILLIN\CLAVULANATE POTASSIUM
     Route: 065
     Dates: start: 20180618, end: 20180620
  11. PARACETAMOL [Concomitant]
     Active Substance: ACETAMINOPHEN
     Indication: EAR PAIN
     Route: 065
     Dates: start: 201709
  12. SINEX [OXYMETAZOLINE HYDROCHLORIDE] [Concomitant]
     Indication: NASAL OBSTRUCTION
     Route: 065
     Dates: start: 201709
  13. CO-AMOXICLAV [AMOXICILLIN;CLAVULANATE POTASSIUM] [Concomitant]
     Active Substance: AMOXICILLIN\CLAVULANATE POTASSIUM
     Indication: LOWER RESPIRATORY TRACT INFECTION
     Route: 065
     Dates: start: 20180620, end: 20180621
  14. COBIMETINIB. [Suspect]
     Active Substance: COBIMETINIB
     Indication: SQUAMOUS CELL CARCINOMA
     Dosage: DATE OF MOST RECENT DOSE OF COBIMETINIB 40 MG PRIOR TO THE SAE: 16/JUN/2018
     Route: 048
     Dates: start: 20180430
  15. CO-AMOXICLAV [AMOXICILLIN;CLAVULANATE POTASSIUM] [Concomitant]
     Active Substance: AMOXICILLIN\CLAVULANATE POTASSIUM
     Indication: RESPIRATORY TRACT INFECTION
     Route: 065
     Dates: start: 20180509, end: 20180514
  16. BECLOMETHASONE [BECLOMETASONE] [Concomitant]
     Active Substance: BECLOMETHASONE
     Indication: POST PROCEDURAL SWELLING
     Route: 055
     Dates: start: 20180831
  17. AUGMENTIN [Concomitant]
     Active Substance: AMOXICILLIN\CLAVULANATE POTASSIUM
     Indication: PREMEDICATION
     Route: 065
     Dates: start: 20180618, end: 20180618
  18. NYSTATIN. [Concomitant]
     Active Substance: NYSTATIN
     Indication: ORAL CANDIDIASIS
     Route: 065
     Dates: start: 20180509, end: 20180514
  19. DEXAMETHASONE. [Concomitant]
     Active Substance: DEXAMETHASONE
     Indication: POST PROCEDURAL SWELLING
     Route: 048
     Dates: start: 20180831, end: 20180901
  20. SENNA [Concomitant]
     Active Substance: SENNA LEAF\SENNOSIDES\SENNOSIDES A AND B
     Indication: CONSTIPATION PROPHYLAXIS
     Route: 065
     Dates: start: 20180619
  21. LANSOPRAZOLE. [Concomitant]
     Active Substance: LANSOPRAZOLE
     Indication: GASTROOESOPHAGEAL REFLUX DISEASE
     Route: 065
     Dates: start: 20180509, end: 20180516
  22. MORPHINE [Concomitant]
     Active Substance: MORPHINE
     Route: 065
     Dates: start: 20180618, end: 20180618
  23. BUSCOPAN [Concomitant]
     Active Substance: BUTYLSCOPOLAMINE BROMIDE
     Indication: PREMEDICATION
     Route: 065
     Dates: start: 20180618, end: 20180618
  24. SALINE [SODIUM CHLORIDE] [Concomitant]
     Active Substance: SODIUM CHLORIDE
     Route: 065
     Dates: start: 20180619, end: 20180621
  25. MORPHINE SULPHATE [Concomitant]
     Active Substance: MORPHINE SULFATE
     Indication: OROPHARYNGEAL PAIN
     Route: 065
     Dates: start: 20180618, end: 20180620
  26. DEXAMETHASONE. [Concomitant]
     Active Substance: DEXAMETHASONE
     Route: 048
     Dates: start: 20180905
  27. PARACETAMOL [Concomitant]
     Active Substance: ACETAMINOPHEN
     Indication: OROPHARYNGEAL PAIN
     Route: 065
     Dates: start: 20180618, end: 20180619
  28. ORAMORPH SR SUSTAINED RELEASE [Concomitant]
     Active Substance: MORPHINE SULFATE
     Indication: EAR PAIN
     Route: 065
     Dates: start: 201709
  29. ORAMORPH SR SUSTAINED RELEASE [Concomitant]
     Active Substance: MORPHINE SULFATE
     Indication: OROPHARYNGEAL PAIN

REACTIONS (1)
  - Dysphagia [Not Recovered/Not Resolved]
